FAERS Safety Report 5046241-4 (Version None)
Quarter: 2006Q3

REPORT INFORMATION
  Report Type: 
  Country: None (occurrence: None)
  Receive Date: 20060710
  Receipt Date: 20040629
  Transmission Date: 20061208
  Serious: Yes (Death, Life-Threatening, Hospitalization, Disabling)
  Sender: FDA-Public Use
  Company Number: FR-BRISTOL-MYERS SQUIBB COMPANY-12630117

PATIENT
  Age: 67 Year
  Sex: Male

DRUGS (2)
  1. ERBITUX [Suspect]
     Indication: COLORECTAL CANCER
     Dosage: REC'D 5 INFUSIONS
     Route: 041
     Dates: start: 20040525, end: 20040622
  2. IRINOTECAN [Suspect]
     Indication: COLORECTAL CANCER
     Dosage: REC'D 5 INFUSIONS
     Route: 042
     Dates: start: 20040525, end: 20040622

REACTIONS (5)
  - ASTHENIA [None]
  - CACHEXIA [None]
  - COLORECTAL CANCER METASTATIC [None]
  - DIARRHOEA [None]
  - SEPTIC SHOCK [None]
